FAERS Safety Report 6413104-9 (Version None)
Quarter: 2009Q4

REPORT INFORMATION
  Report Type: 
  Country: None (occurrence: None)
  Receive Date: 20091022
  Receipt Date: 20091022
  Transmission Date: 20100525
  Serious: Yes (Other)
  Sender: FDA-Public Use
  Company Number: None

PATIENT
  Sex: Female
  Weight: 60.782 kg

DRUGS (4)
  1. SERTRALINE HCL [Suspect]
     Indication: MAJOR DEPRESSION
     Dosage: TAKE 1 100 MG TABLET DAILY -AM- 1/DAY PO
     Route: 048
     Dates: start: 20090910, end: 20090927
  2. SERTRALINE HCL [Suspect]
     Indication: POST-TRAUMATIC STRESS DISORDER
     Dosage: TAKE 1 100 MG TABLET DAILY -AM- 1/DAY PO
     Route: 048
     Dates: start: 20090910, end: 20090927
  3. SERTRALINE HCL [Suspect]
     Indication: MAJOR DEPRESSION
     Dosage: TAKE 1 100MG TABLET DAILY -AM- 1/DAY PO
     Route: 048
     Dates: start: 20080406, end: 20080414
  4. SERTRALINE HCL [Suspect]
     Indication: POST-TRAUMATIC STRESS DISORDER
     Dosage: TAKE 1 100MG TABLET DAILY -AM- 1/DAY PO
     Route: 048
     Dates: start: 20080406, end: 20080414

REACTIONS (6)
  - DRUG EFFECT DECREASED [None]
  - DRUG INEFFECTIVE [None]
  - IRRITABILITY [None]
  - PRODUCT SUBSTITUTION ISSUE [None]
  - TREATMENT FAILURE [None]
  - UNEVALUABLE EVENT [None]
